FAERS Safety Report 7725892-X (Version None)
Quarter: 2011Q3

REPORT INFORMATION
  Report Type: 
  Country: None (occurrence: None)
  Receive Date: 20110902
  Receipt Date: 20110823
  Transmission Date: 20111222
  Serious: Yes (Other)
  Sender: FDA-Public Use
  Company Number: SE-JNJFOC-20110810902

PATIENT
  Age: 58 Year
  Sex: Female

DRUGS (6)
  1. PROGESTIN INJ [Concomitant]
  2. SIMPONI [Suspect]
     Indication: RHEUMATOID ARTHRITIS
     Route: 058
     Dates: start: 20110822
  3. VENASTAT [Concomitant]
     Indication: VARICOSE VEIN
  4. PROGYNON [Concomitant]
  5. SOTALOL HYDROCHLORIDE [Concomitant]
  6. SIMPONI [Suspect]
     Route: 058
     Dates: start: 20100101, end: 20110701

REACTIONS (2)
  - VARICOSE VEIN OPERATION [None]
  - ESCHERICHIA INFECTION [None]
